FAERS Safety Report 23849947 (Version 4)
Quarter: 2024Q3

REPORT INFORMATION
  Report Type: Spontaneous
  Country: US (occurrence: US)
  Receive Date: 20240513
  Receipt Date: 20240814
  Transmission Date: 20241016
  Serious: No
  Sender: AMGEN
  Company Number: US-AMGEN-USASP2024093377

PATIENT
  Age: 71 Year
  Sex: Female

DRUGS (2)
  1. REPATHA [Suspect]
     Active Substance: EVOLOCUMAB
     Indication: Hyperlipidaemia
     Dosage: 420 MILLIGRAM/ 3.5 ML, QMO
     Route: 058
  2. ASPIRIN [Concomitant]
     Active Substance: ASPIRIN
     Dosage: UNK
     Route: 065

REACTIONS (3)
  - Incorrect dose administered by device [Unknown]
  - Injection site haemorrhage [Unknown]
  - Wrong technique in product usage process [Unknown]

NARRATIVE: CASE EVENT DATE: 20240509
